FAERS Safety Report 11368645 (Version 1)
Quarter: 2015Q3

REPORT INFORMATION
  Report Type: Spontaneous
  Country: US (occurrence: US)
  Receive Date: 20150812
  Receipt Date: 20150812
  Transmission Date: 20151125
  Serious: No
  Sender: FDA-Public Use
  Company Number: US-AMGEN-USASP2015079814

PATIENT
  Age: 68 Year
  Sex: Female

DRUGS (2)
  1. ENBREL [Suspect]
     Active Substance: ETANERCEPT
     Indication: PSORIATIC ARTHROPATHY
     Dosage: UNK UNK, QWK
     Route: 065
  2. LODINE [Concomitant]
     Active Substance: ETODOLAC
     Dosage: UNK

REACTIONS (5)
  - Injection site pruritus [Not Recovered/Not Resolved]
  - Injection site swelling [Unknown]
  - Wrong technique in product usage process [Unknown]
  - Injection site erythema [Unknown]
  - Injection site pain [Unknown]
